FAERS Safety Report 24392452 (Version 1)
Quarter: 2024Q4

REPORT INFORMATION
  Report Type: Spontaneous
  Country: CA (occurrence: CA)
  Receive Date: 20241003
  Receipt Date: 20241003
  Transmission Date: 20250114
  Serious: Yes (Death)
  Sender: FRESENIUS KABI
  Company Number: CA-FreseniusKabi-FK202414256

PATIENT
  Age: 77 Year
  Weight: 115 kg

DRUGS (1)
  1. DEXTROSE\HEPARIN SODIUM [Suspect]
     Active Substance: DEXTROSE\HEPARIN SODIUM
     Indication: Product used for unknown indication
     Dosage: FORM OF ADMINISTRATION-SOLUTION INTRAVENOUS

REACTIONS (2)
  - Cardiac tamponade [Fatal]
  - Cardio-respiratory arrest [Fatal]
